FAERS Safety Report 5841865-6 (Version None)
Quarter: 2008Q3

REPORT INFORMATION
  Report Type: 
  Country: None (occurrence: None)
  Receive Date: 20080812
  Receipt Date: 20080805
  Transmission Date: 20090109
  Serious: No
  Sender: FDA-Public Use
  Company Number: US-BAYER-200812960BCC

PATIENT
  Age: 82 Year
  Sex: Female
  Weight: 73 kg

DRUGS (6)
  1. PHILLIPS MILK OF MAGNESIA MINT [Suspect]
     Indication: CONSTIPATION
     Route: 048
     Dates: start: 20080716
  2. PHILLIPS MILK OF MAGNESIA CHERRY [Suspect]
     Indication: CONSTIPATION
     Route: 048
     Dates: start: 20080101
  3. PHILLIPS MILK OF MAGNESIA LIQUID ORIGINAL [Suspect]
     Indication: CONSTIPATION
     Route: 048
  4. TRAMADOL HCL [Concomitant]
  5. VITAMIN B-12 [Concomitant]
  6. BAYER WOMEN'S ASPIRIN [Concomitant]
     Dosage: TOTAL DAILY DOSE: 81 MG  UNIT DOSE: 81 MG
     Dates: start: 19950101

REACTIONS (3)
  - DYSGEUSIA [None]
  - NAUSEA [None]
  - VOMITING [None]
